FAERS Safety Report 14851429 (Version 2)
Quarter: 2018Q2

REPORT INFORMATION
  Report Type: Spontaneous
  Country: US (occurrence: US)
  Receive Date: 20180507
  Receipt Date: 20180608
  Transmission Date: 20180711
  Serious: No
  Sender: FDA-Public Use
  Company Number: US-ASTRAZENECA-2018SE48622

PATIENT
  Age: 704 Month
  Sex: Male
  Weight: 106.1 kg

DRUGS (9)
  1. VITAMIN B12 [Concomitant]
     Active Substance: CYANOCOBALAMIN
  2. DHEA [Concomitant]
     Active Substance: PRASTERONE
     Indication: HORMONE REPLACEMENT THERAPY
     Dates: start: 201804, end: 20180410
  3. BYDUREON [Suspect]
     Active Substance: EXENATIDE
     Indication: DIABETES MELLITUS
     Dosage: ONCE A WEEK
     Route: 058
     Dates: start: 20180326
  4. ZETIA [Concomitant]
     Active Substance: EZETIMIBE
  5. BABY ASPIRIN [Concomitant]
     Active Substance: ASPIRIN
  6. CREATINE [Concomitant]
     Active Substance: CREATINE
     Indication: PROPHYLAXIS
  7. LISINOPRIL. [Suspect]
     Active Substance: LISINOPRIL
     Indication: BLOOD PRESSURE ABNORMAL
     Route: 048
  8. MULITVITAMIN [Concomitant]
  9. METFORMIN [Concomitant]
     Active Substance: METFORMIN HYDROCHLORIDE

REACTIONS (11)
  - Palmar erythema [Recovering/Resolving]
  - Intentional product misuse [Not Recovered/Not Resolved]
  - Device malfunction [Unknown]
  - Lip swelling [Recovering/Resolving]
  - Wrong technique in product usage process [Not Recovered/Not Resolved]
  - Pruritus [Not Recovered/Not Resolved]
  - Rash [Not Recovered/Not Resolved]
  - Diarrhoea [Unknown]
  - Feeling hot [Recovering/Resolving]
  - Urticaria [Not Recovered/Not Resolved]
  - Injection site urticaria [Not Recovered/Not Resolved]

NARRATIVE: CASE EVENT DATE: 201804
